FAERS Safety Report 9143611 (Version 2)
Quarter: 2013Q1

REPORT INFORMATION
  Report Type: Spontaneous
  Country: CN (occurrence: CN)
  Receive Date: 20130306
  Receipt Date: 20130313
  Transmission Date: 20140127
  Serious: Yes (Death, Other)
  Sender: FDA-Public Use
  Company Number: CN-PFIZER INC-2013077936

PATIENT
  Sex: 0

DRUGS (1)
  1. LIPITOR [Suspect]
     Dosage: UNK

REACTIONS (2)
  - Hepatic failure [Fatal]
  - Rhabdomyolysis [Unknown]
